FAERS Safety Report 19286604 (Version 13)
Quarter: 2022Q2

REPORT INFORMATION
  Report Type: Spontaneous
  Country: CA (occurrence: CA)
  Receive Date: 20210521
  Receipt Date: 20220526
  Transmission Date: 20220720
  Serious: Yes (Other)
  Sender: FDA-Public Use
  Company Number: CA-PFIZER INC-2021070590

PATIENT
  Age: 40 Year
  Sex: Female
  Weight: 98 kg

DRUGS (26)
  1. TRAZIMERA [Suspect]
     Active Substance: TRASTUZUMAB-QYYP
     Indication: Breast cancer metastatic
     Dosage: 783 MG X 1 DOSE (8 MG/KG) EVERY 21 DAYS
     Route: 042
     Dates: start: 20210122
  2. TRAZIMERA [Suspect]
     Active Substance: TRASTUZUMAB-QYYP
     Dosage: 6 MG/KG, EVERY 3 WEEKS
     Route: 042
     Dates: start: 20210122
  3. TRAZIMERA [Suspect]
     Active Substance: TRASTUZUMAB-QYYP
     Dosage: 6 MG/KG, EVERY 3 WEEKS
     Route: 042
     Dates: start: 20210122
  4. TRAZIMERA [Suspect]
     Active Substance: TRASTUZUMAB-QYYP
     Dosage: 586 MG, Q 21 DAYS IV REPEAT 6
     Route: 042
     Dates: start: 20210122
  5. TRAZIMERA [Suspect]
     Active Substance: TRASTUZUMAB-QYYP
     Dosage: 587 MG, EVERY 3 WEEKS (Q 21 DAYS (6 MG/KG Q 3 WEEKS)
     Route: 042
  6. TRAZIMERA [Suspect]
     Active Substance: TRASTUZUMAB-QYYP
     Dosage: 440 MG, UNK
     Route: 042
     Dates: start: 20210212
  7. TRAZIMERA [Suspect]
     Active Substance: TRASTUZUMAB-QYYP
     Dosage: 150 MG, UNK
     Route: 042
     Dates: start: 20210212
  8. TRAZIMERA [Suspect]
     Active Substance: TRASTUZUMAB-QYYP
     Dosage: 420 MG (PRESCRIBED DOSE IS 587MG)
     Route: 042
     Dates: start: 20210305
  9. TRAZIMERA [Suspect]
     Active Substance: TRASTUZUMAB-QYYP
     Dosage: 151.2 MG (PRESCRIBED DOSE IS 587MG)
     Route: 042
     Dates: start: 20210305
  10. TRAZIMERA [Suspect]
     Active Substance: TRASTUZUMAB-QYYP
     Dosage: 151 MG, EVERY 3 WEEKS (6 MG/KG)
     Route: 042
     Dates: start: 20210416
  11. TRAZIMERA [Suspect]
     Active Substance: TRASTUZUMAB-QYYP
     Dosage: 587 MG, EVERY 3 WEEKS (6 MG/KG)
     Route: 042
     Dates: start: 20210507
  12. TRAZIMERA [Suspect]
     Active Substance: TRASTUZUMAB-QYYP
     Dosage: 440 MG  (6 MG/KG Q 3 WEEKS)
     Route: 042
     Dates: start: 20210528
  13. TRAZIMERA [Suspect]
     Active Substance: TRASTUZUMAB-QYYP
     Dosage: 440 MG  (6 MG/KG Q 3 WEEKS)
     Route: 042
     Dates: start: 20210528
  14. TRAZIMERA [Suspect]
     Active Substance: TRASTUZUMAB-QYYP
     Dosage: 440 MG  (6 MG/KG Q 3 WEEKS)
     Route: 042
     Dates: start: 20210618
  15. TRAZIMERA [Suspect]
     Active Substance: TRASTUZUMAB-QYYP
     Dosage: 150 MG  (6 MG/KG Q 3 WEEKS)
     Route: 042
     Dates: start: 20210618
  16. TRAZIMERA [Suspect]
     Active Substance: TRASTUZUMAB-QYYP
     Dosage: 440 MG  (6 MG/KG Q 3 WEEKS)
     Route: 042
     Dates: start: 20210730
  17. TRAZIMERA [Suspect]
     Active Substance: TRASTUZUMAB-QYYP
     Dosage: 150 MG  (6 MG/KG Q 3 WEEKS)
     Route: 042
     Dates: start: 20210730
  18. TRAZIMERA [Suspect]
     Active Substance: TRASTUZUMAB-QYYP
     Dosage: 440 MG  (6 MG/KG Q 3 WEEKS)
     Route: 042
     Dates: start: 20220117
  19. TRAZIMERA [Suspect]
     Active Substance: TRASTUZUMAB-QYYP
     Dosage: 150 MG  (6 MG/KG Q 3 WEEKS)
     Route: 042
     Dates: start: 20220117
  20. TRAZIMERA [Suspect]
     Active Substance: TRASTUZUMAB-QYYP
     Dosage: 440 MG  (6 MG/KG Q 3 WEEKS)
     Route: 042
     Dates: start: 20220203
  21. TRAZIMERA [Suspect]
     Active Substance: TRASTUZUMAB-QYYP
     Dosage: 150 MG  (6 MG/KG Q 3 WEEKS)
     Route: 042
     Dates: start: 20220203
  22. TRAZIMERA [Suspect]
     Active Substance: TRASTUZUMAB-QYYP
     Dosage: 6 MG/KG, EVERY 3 WEEKS
     Route: 042
  23. CAPECITABINE [Concomitant]
     Active Substance: CAPECITABINE
     Dosage: UNK
  24. HEPARIN [Concomitant]
     Active Substance: HEPARIN SODIUM
     Dosage: 5 ML, SINGLE
     Dates: start: 20210122
  25. SODIUM CHLORIDE [Concomitant]
     Active Substance: SODIUM CHLORIDE
     Dosage: 10 ML TO FLUSH CVAD
     Dates: start: 20210122
  26. TUKYSA [Concomitant]
     Active Substance: TUCATINIB
     Dosage: UNK

REACTIONS (15)
  - Metastases to bone [Unknown]
  - Drug ineffective [Unknown]
  - Bone pain [Recovered/Resolved]
  - Urinary tract infection [Unknown]
  - Dysuria [Unknown]
  - Pyrexia [Recovered/Resolved]
  - Nausea [Recovered/Resolved]
  - Vomiting [Recovered/Resolved]
  - Blood pressure diastolic decreased [Unknown]
  - Injury [Unknown]
  - Localised infection [Unknown]
  - COVID-19 [Recovering/Resolving]
  - Off label use [Unknown]
  - Product dose omission issue [Unknown]
  - Inappropriate schedule of product administration [Unknown]

NARRATIVE: CASE EVENT DATE: 20210122
